FAERS Safety Report 5965598-0 (Version None)
Quarter: 2008Q4

REPORT INFORMATION
  Report Type: 
  Country: None (occurrence: None)
  Receive Date: 20081121
  Receipt Date: 20080918
  Transmission Date: 20090506
  Serious: Yes (Death, Life-Threatening, Hospitalization)
  Sender: FDA-Public Use
  Company Number: 2008S1017373

PATIENT
  Age: 77 Year
  Sex: Male

DRUGS (1)
  1. PIROXICAM [Suspect]
     Indication: PROCEDURAL PAIN
     Dosage: 20 MG; ORAL
     Route: 048
     Dates: start: 20080701, end: 20080712

REACTIONS (2)
  - DUODENAL ULCER HAEMORRHAGE [None]
  - PEPTIC ULCER HAEMORRHAGE [None]
